FAERS Safety Report 6055659-2 (Version None)
Quarter: 2009Q1

REPORT INFORMATION
  Report Type: 
  Country: None (occurrence: None)
  Receive Date: 20090123
  Receipt Date: 20090111
  Transmission Date: 20090719
  Serious: Yes (Death, Other)
  Sender: FDA-Public Use
  Company Number: 144077

PATIENT
  Age: 58 Year

DRUGS (12)
  1. VINCRISTINE SULFATE [Suspect]
     Indication: HODGKIN'S DISEASE
  2. (MECHLORETHAMINE) [Suspect]
     Indication: HODGKIN'S DISEASE
  3. (PROCARBAZINE) [Suspect]
     Indication: HODGKIN'S DISEASE
  4. PREDNISONE [Suspect]
     Indication: HODGKIN'S DISEASE
  5. DOXORUBICIN HCL [Suspect]
     Indication: HODGKIN'S DISEASE
  6. BLEOMYCIN SULFATE [Suspect]
     Indication: HODGKIN'S DISEASE
  7. (THERAPEUTIC RADIOPHARMACEUTICALS) [Suspect]
     Indication: HODGKIN'S DISEASE
  8. IFOSFAMIDE [Suspect]
     Indication: HODGKIN'S DISEASE
  9. CARBOPLATIN [Suspect]
     Indication: HODGKIN'S DISEASE
  10. ETOPOSIDE [Suspect]
     Indication: HODGKIN'S DISEASE
  11. CARMUSTINE [Suspect]
     Indication: HODGKIN'S DISEASE
  12. CYCLOPHOSPHAMIDE [Suspect]
     Indication: HODGKIN'S DISEASE

REACTIONS (3)
  - ACUTE MYELOID LEUKAEMIA [None]
  - MYELODYSPLASTIC SYNDROME [None]
  - STEM CELL TRANSPLANT [None]
